FAERS Safety Report 7385266-0 (Version None)
Quarter: 2011Q1

REPORT INFORMATION
  Report Type: 
  Country: None (occurrence: None)
  Receive Date: 20110330
  Receipt Date: 20100316
  Transmission Date: 20110831
  Serious: No
  Sender: FDA-Public Use
  Company Number: US-MYLANLABS-2010S1003032

PATIENT
  Age: 69 Year
  Sex: Female

DRUGS (5)
  1. EMSAM [Suspect]
     Indication: BIPOLAR I DISORDER
     Route: 062
     Dates: start: 20100101, end: 20100101
  2. CYTOMEL [Concomitant]
  3. EMSAM [Suspect]
     Route: 062
     Dates: start: 20100101
  4. LEVOTHYROXINE SODIUM [Concomitant]
  5. HORMONE THERAPY [Concomitant]

REACTIONS (4)
  - RASH [None]
  - URTICARIA [None]
  - APPLICATION SITE PRURITUS [None]
  - PRURITUS [None]
